FAERS Safety Report 20996576 (Version 1)
Quarter: 2022Q2

REPORT INFORMATION
  Report Type: Spontaneous
  Country: DK (occurrence: DK)
  Receive Date: 20220623
  Receipt Date: 20220623
  Transmission Date: 20220720
  Serious: Yes (Hospitalization)
  Sender: FDA-Public Use
  Company Number: None

PATIENT
  Age: 70 Year
  Sex: Male

DRUGS (2)
  1. ELIQUIS [Suspect]
     Active Substance: APIXABAN
     Indication: Cerebrovascular accident prophylaxis
     Dosage: STRENGTH: 5 MG
     Route: 048
     Dates: start: 20220607, end: 20220613
  2. ATORVASTATIN ^ACCORD^ [Concomitant]
     Indication: Cardiovascular event prophylaxis
     Route: 048
     Dates: start: 20220328

REACTIONS (3)
  - Vomiting [Recovering/Resolving]
  - Alanine aminotransferase increased [Not Recovered/Not Resolved]
  - Nausea [Recovering/Resolving]

NARRATIVE: CASE EVENT DATE: 20220607
